FAERS Safety Report 7469963-4 (Version None)
Quarter: 2011Q2

REPORT INFORMATION
  Report Type: 
  Country: None (occurrence: None)
  Receive Date: 20110510
  Receipt Date: 20110131
  Transmission Date: 20111010
  Serious: Yes (Death, Other)
  Sender: FDA-Public Use
  Company Number: DE-ROCHE-756899

PATIENT

DRUGS (10)
  1. MYCOPHENOLATE MOFETIL [Suspect]
     Route: 065
  2. METHYLPEDNISOLONE SODIUM SUCCINATE [Suspect]
     Dosage: ON DAY 1
     Route: 040
  3. PREDNISOLONE [Suspect]
     Route: 048
  4. TACROLIMUS [Suspect]
     Route: 048
  5. PREDNISOLONE [Suspect]
     Dosage: DAYS 29 TO 42
     Route: 048
  6. PREDNISOLONE [Suspect]
     Dosage: DOSE 0 TO 5 MG THEREAFTER
     Route: 048
  7. METHYLPEDNISOLONE SODIUM SUCCINATE [Suspect]
     Dosage: BOLUS
     Route: 040
  8. PREDNISOLONE [Suspect]
     Dosage: DAYS 15 TO 28
     Route: 048
  9. PREDNISOLONE [Suspect]
     Dosage: DAYS 43 TO 84
     Route: 048
  10. MYCOPHENOLATE MOFETIL [Suspect]
     Route: 065

REACTIONS (7)
  - PHARYNGITIS [None]
  - BACTERIAL INFECTION [None]
  - URINARY TRACT INFECTION BACTERIAL [None]
  - SEPTIC SHOCK [None]
  - BACTERIAL PYELONEPHRITIS [None]
  - CYTOMEGALOVIRUS INFECTION [None]
  - GASTROENTERITIS [None]
